FAERS Safety Report 15454343 (Version 1)
Quarter: 2018Q4

REPORT INFORMATION
  Report Type: Report from Study
  Country: PL (occurrence: PL)
  Receive Date: 20181002
  Receipt Date: 20181002
  Transmission Date: 20190204
  Serious: Yes (Death, Other)
  Sender: FDA-Public Use
  Company Number: PL-ROCHE-2190705

PATIENT

DRUGS (7)
  1. BENDAMUSTINE [Suspect]
     Active Substance: BENDAMUSTINE
     Indication: B-CELL LYMPHOMA
     Dosage: 1 CYCLE, INDUCTION TREATMENT, ON DAYS: 1, 2
     Route: 042
  2. ATEZOLIZUMAB. [Suspect]
     Active Substance: ATEZOLIZUMAB
     Indication: B-CELL LYMPHOMA
     Dosage: 2-6 CYCLES, ON DAYS: 1, 15
     Route: 042
  3. OBINUTUZUMAB. [Suspect]
     Active Substance: OBINUTUZUMAB
     Indication: B-CELL LYMPHOMA
     Dosage: 1 CYCLE, INDUCTION TREATMENT, ON DAYS: 1, 8, 15
     Route: 042
  4. OBINUTUZUMAB. [Suspect]
     Active Substance: OBINUTUZUMAB
     Dosage: MAINTAINCE TREATMENT, ON 1ST DAY
     Route: 042
  5. OBINUTUZUMAB. [Suspect]
     Active Substance: OBINUTUZUMAB
     Dosage: FOR 2-6 CYCLES, ON 1ST DAY
     Route: 042
  6. BENDAMUSTINE [Suspect]
     Active Substance: BENDAMUSTINE
     Dosage: FOR 2-6 CYCLES, ON DAYS: 1, 2
     Route: 042
  7. ATEZOLIZUMAB. [Suspect]
     Active Substance: ATEZOLIZUMAB
     Dosage: MAINTAINCE TREATMENT, ON DAYS: 1, 2
     Route: 042

REACTIONS (6)
  - Thrombocytopenia [Unknown]
  - Bronchiolitis [Fatal]
  - Myocarditis [Fatal]
  - Neutropenia [Unknown]
  - Lipase increased [Unknown]
  - Colitis [Unknown]
